FAERS Safety Report 10667396 (Version 1)
Quarter: 2014Q4

REPORT INFORMATION
  Report Type: Spontaneous
  Country: FR (occurrence: FR)
  Receive Date: 20141222
  Receipt Date: 20141222
  Transmission Date: 20150529
  Serious: Yes (Hospitalization)
  Sender: FDA-Public Use
  Company Number: FR-JNJFOC-20141211425

PATIENT
  Age: 70 Year
  Sex: Male

DRUGS (7)
  1. AMOXICILLINE [Suspect]
     Active Substance: AMOXICILLIN
     Indication: ANTIBIOTIC PROPHYLAXIS
     Route: 048
     Dates: start: 20141103, end: 20141104
  2. EUGENOL. [Concomitant]
     Active Substance: EUGENOL
     Indication: INFECTION PROPHYLAXIS
     Route: 002
     Dates: start: 20141103, end: 20141110
  3. IXPRIM [Suspect]
     Active Substance: ACETAMINOPHEN\TRAMADOL HYDROCHLORIDE
     Indication: PROCEDURAL PAIN
     Route: 048
     Dates: start: 20141103, end: 20141103
  4. FENOFIBRATE. [Concomitant]
     Active Substance: FENOFIBRATE
     Indication: HYPERTENSION
     Route: 048
     Dates: start: 2012
  5. BETAMETHASONE [Suspect]
     Active Substance: BETAMETHASONE
     Indication: PROPHYLAXIS
     Route: 048
     Dates: start: 20141103, end: 20141106
  6. BISOPROLOL [Concomitant]
     Active Substance: BISOPROLOL
     Indication: HYPERTENSION
     Route: 048
  7. LOXEN [Concomitant]
     Active Substance: NICARDIPINE HYDROCHLORIDE
     Indication: HYPERTENSION
     Route: 048

REACTIONS (1)
  - Hypertensive crisis [Recovered/Resolved]

NARRATIVE: CASE EVENT DATE: 20141106
